FAERS Safety Report 25787213 (Version 2)
Quarter: 2025Q4

REPORT INFORMATION
  Report Type: Spontaneous
  Country: US (occurrence: US)
  Receive Date: 20250910
  Receipt Date: 20251017
  Transmission Date: 20260118
  Serious: Yes (Other)
  Sender: ALEMBIC
  Company Number: US-ALEMBIC PHARMACUETICALS LIMITED-2025SCAL001158

PATIENT

DRUGS (6)
  1. METRONIDAZOLE [Suspect]
     Active Substance: METRONIDAZOLE
     Indication: Immunomodulatory therapy
     Dosage: UNK
     Route: 065
  2. METRONIDAZOLE [Suspect]
     Active Substance: METRONIDAZOLE
     Indication: Neuropsychological symptoms
  3. Immunoglobulin [Concomitant]
     Indication: Immunomodulatory therapy
     Dosage: 1 G/KG/DOSE EVERY MONTH
     Route: 042
  4. Immunoglobulin [Concomitant]
     Indication: Neuropsychological symptoms
     Dosage: 2 G/KG/DOSE EVERY MONTH
     Route: 042
  5. MINOCYCLINE [Concomitant]
     Active Substance: MINOCYCLINE HYDROCHLORIDE
     Indication: Immunomodulatory therapy
     Dosage: UNK
     Route: 065
  6. MINOCYCLINE [Concomitant]
     Active Substance: MINOCYCLINE HYDROCHLORIDE
     Indication: Neuropsychological symptoms

REACTIONS (5)
  - Hallucination [Unknown]
  - Neuropsychological symptoms [Unknown]
  - Condition aggravated [Unknown]
  - Product use in unapproved indication [Unknown]
  - Product use issue [Unknown]

NARRATIVE: CASE EVENT DATE: 20240301
